FAERS Safety Report 18451626 (Version 6)
Quarter: 2021Q4

REPORT INFORMATION
  Report Type: Report from Study
  Country: US (occurrence: US)
  Receive Date: 20201102
  Receipt Date: 20211207
  Transmission Date: 20220303
  Serious: Yes (Life-Threatening, Hospitalization, Other)
  Sender: FDA-Public Use
  Company Number: US-TAKEDA-US202028717

PATIENT
  Age: 69 Year
  Sex: Female

DRUGS (59)
  1. TEDUGLUTIDE [Suspect]
     Active Substance: TEDUGLUTIDE
     Indication: Short-bowel syndrome
     Dosage: 2.9 MILLIGRAM (TED DAILY DOSES 0.0500 MG/KG, TED DOSES PER WEEK 7)
     Route: 065
     Dates: start: 20130812, end: 20130909
  2. TEDUGLUTIDE [Suspect]
     Active Substance: TEDUGLUTIDE
     Indication: Short-bowel syndrome
     Dosage: 2.9 MILLIGRAM (TED DAILY DOSES 0.0500 MG/KG, TED DOSES PER WEEK 7)
     Route: 065
     Dates: start: 20130812, end: 20130909
  3. TEDUGLUTIDE [Suspect]
     Active Substance: TEDUGLUTIDE
     Indication: Short-bowel syndrome
     Dosage: 2.9 MILLIGRAM (TED DAILY DOSES 0.0500 MG/KG, TED DOSES PER WEEK 7)
     Route: 065
     Dates: start: 20130812, end: 20130909
  4. TEDUGLUTIDE [Suspect]
     Active Substance: TEDUGLUTIDE
     Indication: Short-bowel syndrome
     Dosage: 2.9 MILLIGRAM (TED DAILY DOSES 0.0500 MG/KG, TED DOSES PER WEEK 7)
     Route: 065
     Dates: start: 20130812, end: 20130909
  5. TEDUGLUTIDE [Suspect]
     Active Substance: TEDUGLUTIDE
     Dosage: 1.5 MILLIGRAM (TED DAILY DOSE 0.0300 MG/KG, TED DAILY DOSES PER WEEK 7)
     Route: 065
     Dates: start: 20130920, end: 20131009
  6. TEDUGLUTIDE [Suspect]
     Active Substance: TEDUGLUTIDE
     Dosage: 1.5 MILLIGRAM (TED DAILY DOSE 0.0300 MG/KG, TED DAILY DOSES PER WEEK 7)
     Route: 065
     Dates: start: 20130920, end: 20131009
  7. TEDUGLUTIDE [Suspect]
     Active Substance: TEDUGLUTIDE
     Dosage: 1.5 MILLIGRAM (TED DAILY DOSE 0.0300 MG/KG, TED DAILY DOSES PER WEEK 7)
     Route: 065
     Dates: start: 20130920, end: 20131009
  8. TEDUGLUTIDE [Suspect]
     Active Substance: TEDUGLUTIDE
     Dosage: 1.5 MILLIGRAM (TED DAILY DOSE 0.0300 MG/KG, TED DAILY DOSES PER WEEK 7)
     Route: 065
     Dates: start: 20130920, end: 20131009
  9. TEDUGLUTIDE [Suspect]
     Active Substance: TEDUGLUTIDE
     Dosage: 2.0 MILLIGRAM (TED DAILY DOSE 0.0500 MG/KG, TED DOSES PER WEEK 7)
     Route: 065
     Dates: start: 20131009, end: 20131204
  10. TEDUGLUTIDE [Suspect]
     Active Substance: TEDUGLUTIDE
     Dosage: 2.0 MILLIGRAM (TED DAILY DOSE 0.0500 MG/KG, TED DOSES PER WEEK 7)
     Route: 065
     Dates: start: 20131009, end: 20131204
  11. TEDUGLUTIDE [Suspect]
     Active Substance: TEDUGLUTIDE
     Dosage: 2.0 MILLIGRAM (TED DAILY DOSE 0.0500 MG/KG, TED DOSES PER WEEK 7)
     Route: 065
     Dates: start: 20131009, end: 20131204
  12. TEDUGLUTIDE [Suspect]
     Active Substance: TEDUGLUTIDE
     Dosage: 2.0 MILLIGRAM (TED DAILY DOSE 0.0500 MG/KG, TED DOSES PER WEEK 7)
     Route: 065
     Dates: start: 20131009, end: 20131204
  13. TEDUGLUTIDE [Suspect]
     Active Substance: TEDUGLUTIDE
     Dosage: 2.9 MILLIGRAM (TED DAILY DOSE 0.0500 MG/KG, TED DOSES PER WEEK 7)
     Route: 065
     Dates: start: 20131204, end: 20140827
  14. TEDUGLUTIDE [Suspect]
     Active Substance: TEDUGLUTIDE
     Dosage: 2.9 MILLIGRAM (TED DAILY DOSE 0.0500 MG/KG, TED DOSES PER WEEK 7)
     Route: 065
     Dates: start: 20131204, end: 20140827
  15. TEDUGLUTIDE [Suspect]
     Active Substance: TEDUGLUTIDE
     Dosage: 2.9 MILLIGRAM (TED DAILY DOSE 0.0500 MG/KG, TED DOSES PER WEEK 7)
     Route: 065
     Dates: start: 20131204, end: 20140827
  16. TEDUGLUTIDE [Suspect]
     Active Substance: TEDUGLUTIDE
     Dosage: 2.9 MILLIGRAM (TED DAILY DOSE 0.0500 MG/KG, TED DOSES PER WEEK 7)
     Route: 065
     Dates: start: 20131204, end: 20140827
  17. TEDUGLUTIDE [Suspect]
     Active Substance: TEDUGLUTIDE
     Dosage: 1.5 MILLIGRAM (TED DAILY DOSE 0.0300 MG/KG, TED DAILY DOSE PER WEEK 7)
     Route: 065
     Dates: start: 20140827, end: 20140910
  18. TEDUGLUTIDE [Suspect]
     Active Substance: TEDUGLUTIDE
     Dosage: 1.5 MILLIGRAM (TED DAILY DOSE 0.0300 MG/KG, TED DAILY DOSE PER WEEK 7)
     Route: 065
     Dates: start: 20140827, end: 20140910
  19. TEDUGLUTIDE [Suspect]
     Active Substance: TEDUGLUTIDE
     Dosage: 1.5 MILLIGRAM (TED DAILY DOSE 0.0300 MG/KG, TED DAILY DOSE PER WEEK 7)
     Route: 065
     Dates: start: 20140827, end: 20140910
  20. TEDUGLUTIDE [Suspect]
     Active Substance: TEDUGLUTIDE
     Dosage: 1.5 MILLIGRAM (TED DAILY DOSE 0.0300 MG/KG, TED DAILY DOSE PER WEEK 7)
     Route: 065
     Dates: start: 20140827, end: 20140910
  21. TEDUGLUTIDE [Suspect]
     Active Substance: TEDUGLUTIDE
     Dosage: 0.7 MILLIGRAM (TED DAILY DOSE 0.0100 MG/KG, TED DAILY DOSES PER WEEK 7)
     Route: 065
     Dates: start: 20141001, end: 20150114
  22. TEDUGLUTIDE [Suspect]
     Active Substance: TEDUGLUTIDE
     Dosage: 0.7 MILLIGRAM (TED DAILY DOSE 0.0100 MG/KG, TED DAILY DOSES PER WEEK 7)
     Route: 065
     Dates: start: 20141001, end: 20150114
  23. TEDUGLUTIDE [Suspect]
     Active Substance: TEDUGLUTIDE
     Dosage: 0.7 MILLIGRAM (TED DAILY DOSE 0.0100 MG/KG, TED DAILY DOSES PER WEEK 7)
     Route: 065
     Dates: start: 20141001, end: 20150114
  24. TEDUGLUTIDE [Suspect]
     Active Substance: TEDUGLUTIDE
     Dosage: 0.7 MILLIGRAM (TED DAILY DOSE 0.0100 MG/KG, TED DAILY DOSES PER WEEK 7)
     Route: 065
     Dates: start: 20141001, end: 20150114
  25. TEDUGLUTIDE [Suspect]
     Active Substance: TEDUGLUTIDE
     Dosage: 1.5 MILLIGRAM (TED DAILY DOSE 0.0300 MG/KG, TED DOSES PER WEEK 7)
     Route: 065
     Dates: start: 20150114, end: 201510
  26. TEDUGLUTIDE [Suspect]
     Active Substance: TEDUGLUTIDE
     Dosage: 1.5 MILLIGRAM (TED DAILY DOSE 0.0300 MG/KG, TED DOSES PER WEEK 7)
     Route: 065
     Dates: start: 20150114, end: 201510
  27. TEDUGLUTIDE [Suspect]
     Active Substance: TEDUGLUTIDE
     Dosage: 1.5 MILLIGRAM (TED DAILY DOSE 0.0300 MG/KG, TED DOSES PER WEEK 7)
     Route: 065
     Dates: start: 20150114, end: 201510
  28. TEDUGLUTIDE [Suspect]
     Active Substance: TEDUGLUTIDE
     Dosage: 1.5 MILLIGRAM (TED DAILY DOSE 0.0300 MG/KG, TED DOSES PER WEEK 7)
     Route: 065
     Dates: start: 20150114, end: 201510
  29. TEDUGLUTIDE [Suspect]
     Active Substance: TEDUGLUTIDE
     Dosage: 2.9 MILLIGRAM (TED DAILY DOSE 0.0500 MG/KG, TED DOSES PER WEEK 7)
     Route: 065
     Dates: start: 201510, end: 201511
  30. TEDUGLUTIDE [Suspect]
     Active Substance: TEDUGLUTIDE
     Dosage: 2.9 MILLIGRAM (TED DAILY DOSE 0.0500 MG/KG, TED DOSES PER WEEK 7)
     Route: 065
     Dates: start: 201510, end: 201511
  31. TEDUGLUTIDE [Suspect]
     Active Substance: TEDUGLUTIDE
     Dosage: 2.9 MILLIGRAM (TED DAILY DOSE 0.0500 MG/KG, TED DOSES PER WEEK 7)
     Route: 065
     Dates: start: 201510, end: 201511
  32. TEDUGLUTIDE [Suspect]
     Active Substance: TEDUGLUTIDE
     Dosage: 2.9 MILLIGRAM (TED DAILY DOSE 0.0500 MG/KG, TED DOSES PER WEEK 7)
     Route: 065
     Dates: start: 201510, end: 201511
  33. TEDUGLUTIDE [Suspect]
     Active Substance: TEDUGLUTIDE
     Dosage: 1.5 MILLIGRAM (TED DAILY DOSE 0.0300 MG/KG, TED DOSES PER WEEK 7)
     Route: 065
     Dates: start: 20161116, end: 20170322
  34. TEDUGLUTIDE [Suspect]
     Active Substance: TEDUGLUTIDE
     Dosage: 1.5 MILLIGRAM (TED DAILY DOSE 0.0300 MG/KG, TED DOSES PER WEEK 7)
     Route: 065
     Dates: start: 20161116, end: 20170322
  35. TEDUGLUTIDE [Suspect]
     Active Substance: TEDUGLUTIDE
     Dosage: 1.5 MILLIGRAM (TED DAILY DOSE 0.0300 MG/KG, TED DOSES PER WEEK 7)
     Route: 065
     Dates: start: 20161116, end: 20170322
  36. TEDUGLUTIDE [Suspect]
     Active Substance: TEDUGLUTIDE
     Dosage: 1.5 MILLIGRAM (TED DAILY DOSE 0.0300 MG/KG, TED DOSES PER WEEK 7)
     Route: 065
     Dates: start: 20161116, end: 20170322
  37. TEDUGLUTIDE [Suspect]
     Active Substance: TEDUGLUTIDE
     Dosage: 2.9 MILLIGRAM (TED DAILY DOSE 0.0500 MG/KG, TED DOSES PER WEEK 7)
     Route: 065
     Dates: start: 20170322, end: 20190505
  38. TEDUGLUTIDE [Suspect]
     Active Substance: TEDUGLUTIDE
     Dosage: 2.9 MILLIGRAM (TED DAILY DOSE 0.0500 MG/KG, TED DOSES PER WEEK 7)
     Route: 065
     Dates: start: 20170322, end: 20190505
  39. TEDUGLUTIDE [Suspect]
     Active Substance: TEDUGLUTIDE
     Dosage: 2.9 MILLIGRAM (TED DAILY DOSE 0.0500 MG/KG, TED DOSES PER WEEK 7)
     Route: 065
     Dates: start: 20170322, end: 20190505
  40. TEDUGLUTIDE [Suspect]
     Active Substance: TEDUGLUTIDE
     Dosage: 2.9 MILLIGRAM (TED DAILY DOSE 0.0500 MG/KG, TED DOSES PER WEEK 7)
     Route: 065
     Dates: start: 20170322, end: 20190505
  41. TEDUGLUTIDE [Suspect]
     Active Substance: TEDUGLUTIDE
     Dosage: 2.9 MILLIGRAM (TED 4 DOSES PER WEEK)
     Route: 065
     Dates: start: 20190515, end: 20190619
  42. TEDUGLUTIDE [Suspect]
     Active Substance: TEDUGLUTIDE
     Dosage: 2.9 MILLIGRAM (TED 4 DOSES PER WEEK)
     Route: 065
     Dates: start: 20190515, end: 20190619
  43. TEDUGLUTIDE [Suspect]
     Active Substance: TEDUGLUTIDE
     Dosage: 2.9 MILLIGRAM (TED 4 DOSES PER WEEK)
     Route: 065
     Dates: start: 20190515, end: 20190619
  44. TEDUGLUTIDE [Suspect]
     Active Substance: TEDUGLUTIDE
     Dosage: 2.9 MILLIGRAM (TED 4 DOSES PER WEEK)
     Route: 065
     Dates: start: 20190515, end: 20190619
  45. ZINC SULFATE [Concomitant]
     Active Substance: ZINC SULFATE
     Indication: Mineral deficiency
  46. TRAZODONE HCL [Concomitant]
     Active Substance: TRAZODONE HYDROCHLORIDE
     Indication: Neck pain
     Dosage: 150 MILLIGRAM, QD
     Route: 048
     Dates: start: 20190916, end: 20190930
  47. TRAZODONE HCL [Concomitant]
     Active Substance: TRAZODONE HYDROCHLORIDE
     Indication: Insomnia
  48. TOLTERODINE TARTRATE [Concomitant]
     Active Substance: TOLTERODINE TARTRATE
     Indication: Electrolyte imbalance
  49. THIAMINE HYDROCHLORIDE [Concomitant]
     Active Substance: THIAMINE HYDROCHLORIDE
     Indication: Hypovitaminosis
  50. AMINO ACIDS\CARBOHYDRATES\MINERALS\VITAMINS [Concomitant]
     Active Substance: AMINO ACIDS\CARBOHYDRATES\MINERALS\VITAMINS
     Indication: Product used for unknown indication
  51. DILAUDID [Concomitant]
     Active Substance: HYDROMORPHONE HYDROCHLORIDE
     Indication: Pain
     Dosage: 0.50 MILLIGRAM, ONE DOSE
     Route: 058
     Dates: start: 20200125, end: 20200125
  52. ONDANSETRON [Concomitant]
     Active Substance: ONDANSETRON
     Indication: Nausea
     Dosage: 4 MILLIGRAM, ONE DOSE
     Route: 058
     Dates: start: 20200125, end: 20200127
  53. CHLORDIAZEPOXIDE [Concomitant]
     Active Substance: CHLORDIAZEPOXIDE
     Indication: Anxiety
     Dosage: 2.50 MILLIGRAM, QD
     Route: 048
     Dates: start: 20200715
  54. CLIDINIUM [Concomitant]
     Active Substance: CLIDINIUM
     Indication: Abdominal pain
     Dosage: 5 MILLIGRAM, QD
     Route: 048
     Dates: start: 20200715
  55. SPIRIVA [Concomitant]
     Active Substance: TIOTROPIUM BROMIDE MONOHYDRATE
     Indication: Hypoxia
     Dosage: 18 MICROGRAM, QD
     Route: 050
     Dates: start: 20210514
  56. LIDOCAINE [Concomitant]
     Active Substance: LIDOCAINE
     Indication: Prophylaxis
     Dosage: 2 PERCENT, QD
     Route: 067
     Dates: start: 20190705, end: 20190705
  57. ACETAMINOPHEN [Concomitant]
     Active Substance: ACETAMINOPHEN
     Indication: Prophylaxis
     Dosage: 1000 MILLIGRAM, Q8HR
     Route: 048
     Dates: start: 20190918, end: 20190930
  58. SODIUM CHLORIDE [Concomitant]
     Active Substance: SODIUM CHLORIDE
     Indication: Sinus disorder
     Dosage: 0.65 PERCENT, QD
     Route: 055
     Dates: start: 20190920, end: 20190930
  59. BENTYL [Concomitant]
     Active Substance: DICYCLOMINE HYDROCHLORIDE
     Indication: Short-bowel syndrome
     Dosage: 20 MILLIGRAM, TID
     Route: 048
     Dates: start: 20190916, end: 20190929

REACTIONS (4)
  - COVID-19 [Recovered/Resolved]
  - Hyponatraemia [Recovered/Resolved with Sequelae]
  - Staphylococcal sepsis [Recovered/Resolved]
  - Hypomagnesaemia [Recovered/Resolved]

NARRATIVE: CASE EVENT DATE: 20200706
